FAERS Safety Report 10025549 (Version 1)
Quarter: 2014Q1

REPORT INFORMATION
  Report Type: Spontaneous
  Country: BR (occurrence: BR)
  Receive Date: 20140320
  Receipt Date: 20140320
  Transmission Date: 20141002
  Serious: Yes (Hospitalization)
  Sender: FDA-Public Use
  Company Number: BR-PFIZER INC-2014080485

PATIENT
  Age: 54 Year
  Sex: Female
  Weight: 60 kg

DRUGS (3)
  1. ATENOLOL [Suspect]
     Indication: ARRHYTHMIA
     Dosage: 50 MG, DAILY
     Route: 048
     Dates: start: 2006
  2. ESOMEPRAZOLE MAGNESIUM [Suspect]
     Indication: GASTROOESOPHAGEAL REFLUX DISEASE
     Dosage: MEDLEY
     Route: 048
     Dates: end: 201401
  3. ESOMEPRAZOLE MAGNESIUM [Suspect]
     Dosage: 40 MG, DAILY
     Route: 048
     Dates: start: 201401, end: 201403

REACTIONS (4)
  - Cholelithiasis [Unknown]
  - Gastrooesophageal reflux disease [Not Recovered/Not Resolved]
  - Nausea [Not Recovered/Not Resolved]
  - Headache [Not Recovered/Not Resolved]
